FAERS Safety Report 21873416 (Version 1)
Quarter: 2023Q1

REPORT INFORMATION
  Report Type: Spontaneous
  Country: US (occurrence: None)
  Receive Date: 20230116
  Receipt Date: 20230116
  Transmission Date: 20230418
  Serious: Yes (Disabling, Other)
  Sender: FDA-Public Use
  Company Number: None

PATIENT
  Sex: Female

DRUGS (1)
  1. ROSUVASTATIN [Suspect]
     Active Substance: ROSUVASTATIN
     Indication: Blood cholesterol increased
     Dosage: OTHER QUANTITY : 1 TABLET(S);?FREQUENCY : AT BEDTIME;?
     Route: 048
     Dates: start: 20221114, end: 20230103

REACTIONS (7)
  - Back pain [None]
  - Urine abnormality [None]
  - Protein urine present [None]
  - Blood urine present [None]
  - Glucose urine present [None]
  - Glycosylated haemoglobin increased [None]
  - Myalgia [None]

NARRATIVE: CASE EVENT DATE: 20221225
